FAERS Safety Report 9001110 (Version 1)
Quarter: 2013Q1

REPORT INFORMATION
  Report Type: Spontaneous
  Country: US (occurrence: US)
  Receive Date: 20130107
  Receipt Date: 20130107
  Transmission Date: 20140127
  Serious: Yes (Hospitalization)
  Sender: FDA-Public Use
  Company Number: US-JNJFOC-20121213350

PATIENT
  Sex: Male

DRUGS (1)
  1. ZYTIGA [Suspect]
     Indication: NEOPLASM MALIGNANT
     Route: 048

REACTIONS (5)
  - Atrial fibrillation [Unknown]
  - Pneumonia [Unknown]
  - Dyspnoea [Unknown]
  - Leukocytosis [Unknown]
  - Thrombocytopenia [Unknown]
